FAERS Safety Report 15554101 (Version 2)
Quarter: 2020Q3

REPORT INFORMATION
  Report Type: Spontaneous
  Country: ES (occurrence: ES)
  Receive Date: 20181026
  Receipt Date: 20200921
  Transmission Date: 20201102
  Serious: Yes (Other)
  Sender: FDA-Public Use
  Company Number: ES-AUROBINDO-AUR-APL-2018-051940

PATIENT
  Age: 83 Year
  Sex: Female

DRUGS (17)
  1. TRYPTIZOL [Concomitant]
     Active Substance: AMITRIPTYLINE HYDROCHLORIDE
     Indication: PLASMA CELL MYELOMA
     Dosage: 1 DOSAGE FORM, DAILY
     Route: 048
     Dates: start: 20180119
  2. CETIRIZINE [Concomitant]
     Active Substance: CETIRIZINE HYDROCHLORIDE
     Indication: CEREBRAL ISCHAEMIA
     Dosage: 1 DOSAGE FORM, DAILY
     Route: 048
     Dates: start: 20120704
  3. EUTIROX [Concomitant]
     Active Substance: LEVOTHYROXINE SODIUM
     Indication: HYPOTHYROIDISM
     Dosage: 1 DOSAGE FORM, DAILY
     Route: 048
     Dates: start: 20120125
  4. ALPRAZOLAM. [Concomitant]
     Active Substance: ALPRAZOLAM
     Indication: PRODUCT USED FOR UNKNOWN INDICATION
     Dosage: 1 DOSAGE FORM, 3 TIMES A DAY
     Route: 054
     Dates: start: 20110506
  5. FOSTER [Concomitant]
     Active Substance: BECLOMETHASONE\FORMOTEROL
     Indication: ASTHMA
     Dosage: 1 DOSAGE FORM, TWO TIMES A DAY,1 PUFF C/12 H
     Route: 055
     Dates: start: 20120124
  6. TAPENTADOL [Concomitant]
     Active Substance: TAPENTADOL
     Indication: OSTEOARTHRITIS
     Dosage: 1 DOSAGE FORM, TWO TIMES A DAY
     Route: 048
     Dates: start: 20180927
  7. LORMETAZEPAM [Concomitant]
     Active Substance: LORMETAZEPAM
     Indication: CEREBRAL ISCHAEMIA
     Dosage: 1 DOSAGE FORM, DAILY
     Route: 048
     Dates: start: 20170515
  8. VENLAFAXINE [Concomitant]
     Active Substance: VENLAFAXINE HYDROCHLORIDE
     Indication: PERSISTENT DEPRESSIVE DISORDER
     Dosage: 1 DOSAGE FORM, TWO TIMES A DAY
     Route: 048
     Dates: start: 20110314
  9. ATROVENT [Concomitant]
     Active Substance: IPRATROPIUM BROMIDE
     Indication: ASTHMA
     Dosage: 40 MICROGRAM, FOUR TIMES/DAY (6 HOURS)
     Route: 055
     Dates: start: 20180413
  10. CANDESARTAN. [Concomitant]
     Active Substance: CANDESARTAN
     Indication: PRODUCT USED FOR UNKNOWN INDICATION
     Dosage: 1 DOSAGE FORM, DAILY
     Route: 048
     Dates: start: 20111108
  11. CALCIUM + D3 [Concomitant]
     Active Substance: CALCIUM\CHOLECALCIFEROL
     Indication: PLASMA CELL MYELOMA
     Dosage: 1 DOSAGE FORM, DAILY
     Route: 048
     Dates: start: 20171005
  12. PREGABALIN. [Concomitant]
     Active Substance: PREGABALIN
     Indication: CERVICOBRACHIAL SYNDROME
     Dosage: 1 DOSAGE FORM
     Route: 048
     Dates: start: 20180202
  13. QUETIAPINA FILM?COATED TABLETS 25MG [Suspect]
     Active Substance: QUETIAPINE FUMARATE
     Indication: PERSISTENT DEPRESSIVE DISORDER
     Dosage: 1 DOSAGE FORM, DAILY
     Route: 065
     Dates: start: 20180903, end: 20181003
  14. LATANOPROST. [Concomitant]
     Active Substance: LATANOPROST
     Indication: CATARACT
     Dosage: 1 DOSAGE FORM, DAILY
     Route: 047
     Dates: start: 20120124
  15. ACETYLSALICYLIC ACID [Concomitant]
     Active Substance: ASPIRIN
     Indication: DISEASE RISK FACTOR
     Dosage: 1 DOSAGE FORM, DAILY
     Route: 048
     Dates: start: 20120320
  16. PANTOPRAZOLE [Concomitant]
     Active Substance: PANTOPRAZOLE
     Indication: GASTRITIS
     Dosage: 1 DOSAGE FORM, DAILY
     Route: 048
     Dates: start: 20151126
  17. PARACETAMOL MUNDOGEN [Concomitant]
     Indication: PLASMA CELL MYELOMA
     Dosage: 1 DOSAGE FORM, 3 TIMES A DAY
     Route: 048
     Dates: start: 20180118

REACTIONS (2)
  - Pharyngeal enanthema [Recovered/Resolved]
  - Oral mucosal erythema [Recovered/Resolved]

NARRATIVE: CASE EVENT DATE: 20180927
